FAERS Safety Report 8005965-7 (Version None)
Quarter: 2011Q4

REPORT INFORMATION
  Report Type: 
  Country: None (occurrence: None)
  Receive Date: 20111223
  Receipt Date: 20111214
  Transmission Date: 20120403
  Serious: Yes (Hospitalization)
  Sender: FDA-Public Use
  Company Number: US-ASTRAZENECA-2011SE75636

PATIENT
  Age: 47 Year
  Sex: Female
  Weight: 81.6 kg

DRUGS (3)
  1. SEROQUEL [Suspect]
     Route: 048
     Dates: start: 20050101
  2. SIMVASTATIN [Concomitant]
     Indication: BLOOD CHOLESTEROL ABNORMAL
     Route: 048
  3. METOPROLOL SUCCINATE [Concomitant]
     Indication: HYPERTENSION
     Route: 048

REACTIONS (8)
  - CONFUSIONAL STATE [None]
  - THINKING ABNORMAL [None]
  - DYSGRAPHIA [None]
  - DRUG DOSE OMISSION [None]
  - APHONIA [None]
  - THERAPEUTIC RESPONSE UNEXPECTED [None]
  - GAIT DISTURBANCE [None]
  - WEIGHT INCREASED [None]
